FAERS Safety Report 18442613 (Version 1)
Quarter: 2020Q4

REPORT INFORMATION
  Report Type: Spontaneous
  Country: TR (occurrence: TR)
  Receive Date: 20201029
  Receipt Date: 20201029
  Transmission Date: 20210114
  Serious: Yes (Other)
  Sender: FDA-Public Use
  Company Number: NVSC2020TR285232

PATIENT
  Age: 73 Year
  Sex: Female

DRUGS (1)
  1. TRILEPTAL [Suspect]
     Active Substance: OXCARBAZEPINE
     Indication: TRIGEMINAL NEURALGIA
     Dosage: UNK UNK, TID
     Route: 048

REACTIONS (9)
  - Depressed level of consciousness [Unknown]
  - Anal incontinence [Unknown]
  - Urinary incontinence [Unknown]
  - Off label use [Unknown]
  - Product availability issue [Unknown]
  - Dysphagia [Unknown]
  - Loss of consciousness [Unknown]
  - Balance disorder [Unknown]
  - Tongue disorder [Unknown]
